FAERS Safety Report 12221706 (Version 1)
Quarter: 2016Q1

REPORT INFORMATION
  Report Type: Spontaneous
  Country: US (occurrence: US)
  Receive Date: 20160330
  Receipt Date: 20160330
  Transmission Date: 20160526
  Serious: Yes (Death, Other)
  Sender: FDA-Public Use
  Company Number: PHHY2016US038123

PATIENT
  Age: 64 Year
  Sex: Male

DRUGS (8)
  1. IMIQUIMOD. [Suspect]
     Active Substance: IMIQUIMOD
     Dosage: ONCE DAILY FOR 7 CONSECUTIVE DAYS EACH MONTH, QD
     Route: 061
  2. CARBOPLATIN. [Suspect]
     Active Substance: CARBOPLATIN
     Indication: METASTASES TO SKIN
     Dosage: 5 CYCLES
     Route: 065
  3. TRETINOIN. [Suspect]
     Active Substance: TRETINOIN
     Dosage: ONCE DAILY FOR 7 CONSECUTIVE DAYS EACH MONTH, QD
     Route: 061
  4. INTERLEUKIN-2 [Suspect]
     Active Substance: ALDESLEUKIN
     Dosage: 11 MILLION UNITS PER INJECTION, UNK
     Route: 065
  5. INTERLEUKIN-2 [Suspect]
     Active Substance: ALDESLEUKIN
     Indication: METASTATIC NEOPLASM
     Dosage: BEGINNING AT 7 MILLION UNITS PER TREATMENT AND INCREASED BY 2 MILLION UNITS WEEKLY, QW2
     Route: 065
  6. TRETINOIN. [Suspect]
     Active Substance: TRETINOIN
     Indication: METASTATIC NEOPLASM
     Dosage: UNK UNK, QD
     Route: 061
  7. PACLITAXEL. [Suspect]
     Active Substance: PACLITAXEL
     Indication: METASTASES TO SKIN
     Dosage: 5 CYCLES
     Route: 065
  8. IMIQUIMOD. [Suspect]
     Active Substance: IMIQUIMOD
     Indication: METASTATIC NEOPLASM
     Dosage: UNK UNK, QD
     Route: 061

REACTIONS (12)
  - Inflammation [Unknown]
  - Death [Fatal]
  - Erythema [Unknown]
  - Metastases to bone [Unknown]
  - Back pain [Unknown]
  - Metastatic malignant melanoma [Unknown]
  - Metastases to lung [Unknown]
  - Nausea [Recovered/Resolved]
  - Skin erosion [Unknown]
  - Metastases to liver [Unknown]
  - Chills [Unknown]
  - Product use issue [Unknown]
